FAERS Safety Report 21392056 (Version 1)
Quarter: 2022Q3

REPORT INFORMATION
  Report Type: Report from Study
  Country: AU (occurrence: AU)
  Receive Date: 20220929
  Receipt Date: 20220929
  Transmission Date: 20221027
  Serious: Yes (Death)
  Sender: FDA-Public Use
  Company Number: AU-ABBVIE-4132926

PATIENT
  Age: 77 Year
  Sex: Female

DRUGS (1)
  1. CARBIDOPA\LEVODOPA [Suspect]
     Active Substance: CARBIDOPA\LEVODOPA
     Indication: Parkinson^s disease
     Route: 050
     Dates: start: 20190221, end: 20220922

REACTIONS (1)
  - Death [Fatal]

NARRATIVE: CASE EVENT DATE: 20220922
